FAERS Safety Report 19376161 (Version 1)
Quarter: 2021Q2

REPORT INFORMATION
  Report Type: Spontaneous
  Country: AR (occurrence: AR)
  Receive Date: 20210604
  Receipt Date: 20210604
  Transmission Date: 20210717
  Serious: Yes (Death, Hospitalization, Other)
  Sender: FDA-Public Use
  Company Number: AR-PFIZER INC-2021619645

PATIENT
  Sex: Male

DRUGS (1)
  1. BOSUTINIB [Suspect]
     Active Substance: BOSUTINIB
     Indication: CHRONIC MYELOID LEUKAEMIA
     Dosage: UNK
     Dates: start: 20210522

REACTIONS (6)
  - Diarrhoea [Unknown]
  - Renal failure [Fatal]
  - Metabolic acidosis [Fatal]
  - Dehydration [Fatal]
  - Vomiting [Unknown]
  - Nausea [Unknown]
